FAERS Safety Report 12432668 (Version 2)
Quarter: 2016Q2

REPORT INFORMATION
  Report Type: Spontaneous
  Country: US (occurrence: US)
  Receive Date: 20160603
  Receipt Date: 20160613
  Transmission Date: 20160815
  Serious: Yes (Other)
  Sender: FDA-Public Use
  Company Number: US-ASTRAZENECA-2016SE58792

PATIENT
  Age: 64 Year
  Sex: Female
  Weight: 74 kg

DRUGS (1)
  1. NEXIUM 24HR [Suspect]
     Active Substance: ESOMEPRAZOLE MAGNESIUM
     Indication: GASTROOESOPHAGEAL REFLUX DISEASE
     Dosage: 1 DF, UNKNOWN
     Route: 048
     Dates: start: 20160520

REACTIONS (8)
  - Cold sweat [Recovering/Resolving]
  - Palpitations [Recovering/Resolving]
  - Gastric disorder [Unknown]
  - Off label use [Unknown]
  - Chest discomfort [Not Recovered/Not Resolved]
  - Pallor [Recovering/Resolving]
  - Muscular weakness [Not Recovered/Not Resolved]
  - Panic attack [Not Recovered/Not Resolved]

NARRATIVE: CASE EVENT DATE: 20160520
